FAERS Safety Report 9359427 (Version 1)
Quarter: 2013Q2

REPORT INFORMATION
  Report Type: Spontaneous
  Country: US (occurrence: US)
  Receive Date: 20130620
  Receipt Date: 20130620
  Transmission Date: 20140414
  Serious: No
  Sender: FDA-Public Use
  Company Number: US-US-EMD SERONO, INC.-7005845

PATIENT
  Sex: Female

DRUGS (4)
  1. REBIF [Suspect]
     Indication: PRODUCT USED FOR UNKNOWN INDICATION
     Route: 058
     Dates: start: 20100127
  2. CLONOPIN [Concomitant]
  3. BACLOFEN [Concomitant]
  4. DITROPAN [Concomitant]

REACTIONS (5)
  - Upper-airway cough syndrome [Unknown]
  - Injection site reaction [Unknown]
  - Insomnia [Not Recovered/Not Resolved]
  - Somnolence [Not Recovered/Not Resolved]
  - Injection site erythema [Unknown]
